FAERS Safety Report 7211499-X (Version None)
Quarter: 2011Q1

REPORT INFORMATION
  Report Type: 
  Country: None (occurrence: None)
  Receive Date: 20110105
  Receipt Date: 20101217
  Transmission Date: 20110831
  Serious: Yes (Hospitalization)
  Sender: FDA-Public Use
  Company Number: FR-PFIZER INC-2009279312

PATIENT
  Age: 85 Year
  Sex: Female

DRUGS (3)
  1. ALDACTAZINE [Suspect]
     Dosage: 0.5 DF, UNK
     Route: 048
     Dates: end: 20090819
  2. EUPANTOL [Suspect]
     Dosage: 1 DF, 1X/DAY
     Route: 048
     Dates: end: 20090819
  3. LEKOVIT CA [Suspect]
     Dosage: 1 DF, 1X/DAY
     Route: 048
     Dates: end: 20090819

REACTIONS (1)
  - PANCREATITIS ACUTE [None]
